FAERS Safety Report 4344219-7 (Version None)
Quarter: 2004Q2

REPORT INFORMATION
  Report Type: 
  Country: None (occurrence: None)
  Receive Date: 20040419
  Receipt Date: 20040329
  Transmission Date: 20050107
  Serious: Yes (Death)
  Sender: FDA-Public Use
  Company Number: B0326527A

PATIENT
  Age: 64 Year
  Sex: Female

DRUGS (3)
  1. AMOXIL [Suspect]
     Indication: PNEUMONIA PNEUMOCOCCAL
  2. PREDNISONE [Concomitant]
  3. ERYTHROMYCIN [Concomitant]

REACTIONS (4)
  - DRUG HYPERSENSITIVITY [None]
  - MULTI-ORGAN FAILURE [None]
  - STEVENS-JOHNSON SYNDROME [None]
  - TOXIC EPIDERMAL NECROLYSIS [None]
